FAERS Safety Report 8087568 (Version 6)
Quarter: 2012Q4

REPORT INFORMATION
  Report Type: 
  Country: US (occurrence: None)
  Receive Date: 20110803
  Receipt Date: 20121012
  Transmission Date: 20130627
  Serious: Yes (Hospitalization, Other)
  Sender: FDA-Public Use
  Company Number: DSA_47264_2011

PATIENT
  Age: 22 Year
  Sex: Female

DRUGS (31)
  1. ELIDEL [Suspect]
     Indication: ECZEMA
     Dosage: (DF TOPICAL)
     Route: 061
     Dates: start: 200303
  2. ZYRTEC [Concomitant]
  3. ATIVAN [Concomitant]
  4. PRENATAL VITAMINS /01549301/ [Concomitant]
  5. ADVIL [Concomitant]
  6. PERCOCET [Concomitant]
  7. IBUPROFEN [Concomitant]
  8. TYLENOL [Concomitant]
  9. SENOKOT /00142205/ [Concomitant]
  10. NEULASTA [Concomitant]
  11. ASPIRIN [Concomitant]
  12. CORTISONE ACETATE [Concomitant]
  13. ALDARA [Concomitant]
  14. HYDROXYZINE [Concomitant]
  15. CEPHALEXIN [Concomitant]
  16. TRIAMCINOLONE [Concomitant]
  17. AZITHROMYCIN [Concomitant]
  18. DOXYCYCLINE [Concomitant]
  19. ZANTAC [Concomitant]
  20. CORDRAN [Concomitant]
  21. ATARAX [Concomitant]
  22. SINGULAIR [Concomitant]
  23. AMLODIPINE BESYLATE [Concomitant]
  24. RANITIDINE [Concomitant]
  25. HYDROCODONE [Concomitant]
  26. MUPIROCIN [Concomitant]
  27. METHYLPREDNISOLONE [Concomitant]
  28. NIZORAL [Concomitant]
  29. DIFLUCAN [Concomitant]
  30. LOPROX [Concomitant]
  31. SULFAMETHOXAZOLE [Concomitant]

REACTIONS (48)
  - Hodgkin^s disease [None]
  - Caesarean section [None]
  - Maternal exposure during pregnancy [None]
  - Hepatomegaly [None]
  - Alopecia [None]
  - Pneumothorax [None]
  - Keloid scar [None]
  - Dermal cyst [None]
  - Night sweats [None]
  - Rhinitis allergic [None]
  - Rash [None]
  - Laryngocele [None]
  - Vaginal haemorrhage [None]
  - Gingival recession [None]
  - Head injury [None]
  - Dizziness [None]
  - Hand fracture [None]
  - Reflux laryngitis [None]
  - Viral upper respiratory tract infection [None]
  - Ear infection [None]
  - Urticaria [None]
  - Thymus disorder [None]
  - Fibrosis [None]
  - Mediastinal mass [None]
  - Condition aggravated [None]
  - Skin papilloma [None]
  - Hypersensitivity [None]
  - Hand fracture [None]
  - Hernia [None]
  - Pregnancy [None]
  - Ear pain [None]
  - Nasal congestion [None]
  - Haemorrhoids [None]
  - Haematochezia [None]
  - Dermal cyst [None]
  - Atelectasis [None]
  - Skin infection [None]
  - Depression [None]
  - Ecchymosis [None]
  - Mediastinal cyst [None]
  - Thrombosis [None]
  - Chest discomfort [None]
  - Pyelocaliectasis [None]
  - Bladder dilatation [None]
  - Onychomycosis [None]
  - Palpitations [None]
  - Spinal osteoarthritis [None]
  - Osteoarthritis [None]
